FAERS Safety Report 9256651 (Version 1)
Quarter: 2013Q2

REPORT INFORMATION
  Report Type: Spontaneous
  Country: US (occurrence: US)
  Receive Date: 20130426
  Receipt Date: 20130426
  Transmission Date: 20140414
  Serious: No
  Sender: FDA-Public Use
  Company Number: US-009507513-1304USA015706

PATIENT
  Age: 25 Year
  Sex: Female

DRUGS (3)
  1. NUVARING [Suspect]
     Indication: CONTRACEPTION
     Dosage: UNK
     Route: 067
     Dates: start: 2012
  2. TYLENOL WITH CODEINE [Concomitant]
  3. SOMA [Concomitant]

REACTIONS (3)
  - Coagulopathy [Unknown]
  - Anaemia [Unknown]
  - Urinary tract infection [Unknown]
